FAERS Safety Report 21101766 (Version 2)
Quarter: 2022Q3

REPORT INFORMATION
  Report Type: Spontaneous
  Country: US (occurrence: None)
  Receive Date: 20220719
  Receipt Date: 20220726
  Transmission Date: 20221027
  Serious: No
  Sender: FDA-Public Use
  Company Number: 2022A229423

PATIENT
  Age: 21003 Day
  Sex: Female

DRUGS (1)
  1. BYDUREON BCISE [Suspect]
     Active Substance: EXENATIDE
     Dosage: 2.0MG UNKNOWN
     Route: 058

REACTIONS (6)
  - Frustration tolerance decreased [Unknown]
  - Incorrect dose administered by device [Not Recovered/Not Resolved]
  - Device use issue [Unknown]
  - Drug ineffective [Unknown]
  - Inability to afford medication [Unknown]
  - Device malfunction [Unknown]

NARRATIVE: CASE EVENT DATE: 20220620
